FAERS Safety Report 12763327 (Version 1)
Quarter: 2016Q3

REPORT INFORMATION
  Report Type: Report from Study
  Country: US (occurrence: US)
  Receive Date: 20160920
  Receipt Date: 20160920
  Transmission Date: 20161109
  Serious: Yes (Other)
  Sender: FDA-Public Use
  Company Number: US-ARIAD PHARMACEUTICALS, INC-2016US006555

PATIENT
  Sex: Female

DRUGS (4)
  1. OTHER CHEMOTHERAPEUTICS [Suspect]
     Active Substance: UNSPECIFIED INGREDIENT
     Indication: CHRONIC MYELOID LEUKAEMIA
     Dosage: UNK
  2. ICLUSIG [Suspect]
     Active Substance: PONATINIB
     Dosage: 45 MG, QD
     Route: 048
  3. ICLUSIG [Suspect]
     Active Substance: PONATINIB
     Dosage: 45 MG, QD
     Route: 048
     Dates: start: 20160513
  4. ICLUSIG [Suspect]
     Active Substance: PONATINIB
     Indication: CHRONIC MYELOID LEUKAEMIA
     Dosage: 45 MG, QD
     Route: 048
     Dates: start: 20160513

REACTIONS (13)
  - Vitreous haemorrhage [Unknown]
  - Bone pain [Recovered/Resolved]
  - Alopecia [Unknown]
  - Platelet aggregation abnormal [Unknown]
  - Dry skin [Not Recovered/Not Resolved]
  - Pupil fixed [Unknown]
  - Basal cell carcinoma [Unknown]
  - Therapeutic response decreased [Unknown]
  - Transaminases increased [Unknown]
  - Rash [Unknown]
  - Headache [Recovered/Resolved]
  - Pruritus [Not Recovered/Not Resolved]
  - Rash pruritic [Unknown]
